FAERS Safety Report 17198915 (Version 1)
Quarter: 2019Q4

REPORT INFORMATION
  Report Type: Report from Study
  Country: AR (occurrence: AR)
  Receive Date: 20191225
  Receipt Date: 20191225
  Transmission Date: 20200122
  Serious: Yes (Hospitalization)
  Sender: FDA-Public Use
  Company Number: AR-AMGEN-ARGSL2019149244

PATIENT
  Sex: Male

DRUGS (1)
  1. VECTIBIX [Suspect]
     Active Substance: PANITUMUMAB
     Indication: COLORECTAL CANCER METASTATIC
     Dosage: UNK, Q2WK
     Route: 065

REACTIONS (9)
  - Oral mucosal blistering [Not Recovered/Not Resolved]
  - Eczema [Not Recovered/Not Resolved]
  - Unevaluable event [Unknown]
  - Rash [Not Recovered/Not Resolved]
  - Capillary disorder [Not Recovered/Not Resolved]
  - Purpura [Not Recovered/Not Resolved]
  - Secretion discharge [Not Recovered/Not Resolved]
  - Vein disorder [Not Recovered/Not Resolved]
  - Intertrigo [Not Recovered/Not Resolved]

NARRATIVE: CASE EVENT DATE: 2019
